FAERS Safety Report 9142703 (Version 1)
Quarter: 2013Q1

REPORT INFORMATION
  Report Type: Spontaneous
  Country: US (occurrence: US)
  Receive Date: 20130306
  Receipt Date: 20130306
  Transmission Date: 20140127
  Serious: No
  Sender: FDA-Public Use
  Company Number: US-ENDO PHARMACEUTICALS INC.-OPER20110312

PATIENT
  Age: 33 None
  Sex: Female
  Weight: 69.01 kg

DRUGS (2)
  1. OPANA ER [Suspect]
     Indication: BACK PAIN
     Route: 048
     Dates: start: 201108, end: 20111102
  2. OPANA [Suspect]
     Indication: BACK PAIN
     Dosage: 10 MG
     Route: 048
     Dates: start: 201108, end: 20111102

REACTIONS (6)
  - Blood pressure increased [Not Recovered/Not Resolved]
  - Heart rate increased [Not Recovered/Not Resolved]
  - Gastrooesophageal reflux disease [Unknown]
  - Melaena [Unknown]
  - Constipation [Unknown]
  - Dizziness [Not Recovered/Not Resolved]
